FAERS Safety Report 4341502-6 (Version None)
Quarter: 2004Q2

REPORT INFORMATION
  Report Type: 
  Country: None (occurrence: None)
  Receive Date: 20040415
  Receipt Date: 20040331
  Transmission Date: 20050107
  Serious: Yes (Hospitalization, Other)
  Sender: FDA-Public Use
  Company Number: USA-2003-0009504

PATIENT
  Age: 42 Year
  Sex: Female
  Weight: 93.9 kg

DRUGS (2)
  1. OXYCONTIN [Suspect]
     Indication: PAIN
     Dosage: 20 MG, SEE TEXT, NASAL
     Route: 045
     Dates: start: 20030601
  2. SULFATRIM DS (SULFAMETHOXAZOLE, TRIMETHOPRIM) [Concomitant]

REACTIONS (4)
  - BODY TEMPERATURE INCREASED [None]
  - DRUG ABUSER [None]
  - MEDICATION ERROR [None]
  - PNEUMONIA [None]
